FAERS Safety Report 24822325 (Version 5)
Quarter: 2025Q3

REPORT INFORMATION
  Report Type: Spontaneous
  Country: US (occurrence: US)
  Receive Date: 20250108
  Receipt Date: 20250816
  Transmission Date: 20251021
  Serious: No
  Sender: ALEXION PHARMACEUTICALS
  Company Number: US-AstraZeneca-CH-00779577A

PATIENT
  Sex: Female

DRUGS (3)
  1. FASLODEX [Suspect]
     Active Substance: FULVESTRANT
     Indication: Breast cancer stage IV
     Route: 065
  2. FASLODEX [Suspect]
     Active Substance: FULVESTRANT
  3. VERZENIO [Concomitant]
     Active Substance: ABEMACICLIB

REACTIONS (13)
  - Cough [Unknown]
  - Chills [Unknown]
  - Disorientation [Unknown]
  - Confusional state [Unknown]
  - Vomiting [Unknown]
  - Pain [Unknown]
  - Arthralgia [Unknown]
  - Gait disturbance [Unknown]
  - Influenza [Unknown]
  - Abdominal discomfort [Unknown]
  - Insomnia [Unknown]
  - Palpitations [Unknown]
  - Fear [Unknown]
